FAERS Safety Report 10342495 (Version 1)
Quarter: 2014Q3

REPORT INFORMATION
  Report Type: Spontaneous
  Country: CA (occurrence: CA)
  Receive Date: 20140725
  Receipt Date: 20140725
  Transmission Date: 20150326
  Serious: Yes (Death)
  Sender: FDA-Public Use
  Company Number: PHHY2014CA091228

PATIENT
  Age: 31 Year
  Sex: Male

DRUGS (4)
  1. LORAZEPAM. [Concomitant]
     Active Substance: LORAZEPAM
     Dosage: UNK
  2. CLOZARIL [Suspect]
     Active Substance: CLOZAPINE
     Dosage: 400 MG, QD
     Route: 048
  3. LOXAPINE [Concomitant]
     Active Substance: LOXAPINE
     Dosage: UNK
  4. NICOTINE. [Concomitant]
     Active Substance: NICOTINE
     Dosage: UNK

REACTIONS (3)
  - Vomiting [Fatal]
  - Pulse absent [Fatal]
  - Unresponsive to stimuli [Fatal]
